FAERS Safety Report 8017348-4 (Version None)
Quarter: 2012Q1

REPORT INFORMATION
  Report Type: 
  Country: None (occurrence: None)
  Receive Date: 20120102
  Receipt Date: 20111223
  Transmission Date: 20120608
  Serious: Yes (Hospitalization)
  Sender: FDA-Public Use
  Company Number: DE-ROCHE-1025500

PATIENT
  Sex: Male
  Weight: 77.9 kg

DRUGS (10)
  1. DEKRISTOL [Concomitant]
     Dosage: 1 DOSE FORM /MONTH
     Route: 065
  2. BASILIXIMAB [Suspect]
     Indication: RENAL TRANSPLANT
     Dosage: LAST DOSE PRIOR TO SAE 17/APR/2011
     Route: 042
     Dates: start: 20110413
  3. METFORMIN HCL [Concomitant]
     Route: 065
  4. PREDNISOLONE [Suspect]
     Indication: RENAL TRANSPLANT
     Dosage: DRUG REPORTED:SOLU DECORTIN,LAST DOSE PRIOR TO SAE 20/APR/2011
     Route: 048
  5. PANTOPRAZOLE [Concomitant]
     Route: 065
  6. BICANORM [Concomitant]
     Route: 065
  7. TACROLIMUS [Suspect]
     Indication: RENAL TRANSPLANT
     Dosage: LAST DOSE PRIOR TO SAE 10/DEC/2011
     Route: 048
     Dates: start: 20111210
  8. FLUVASTATIN [Concomitant]
     Route: 065
  9. REPAGLINID [Concomitant]
     Route: 065
  10. MYCOPHENOLATE MOFETIL (CELLCEPT) [Suspect]
     Indication: RENAL TRANSPLANT
     Dosage: LAST DOSE PRIOR TO SAE 10/DEC/2011
     Route: 048

REACTIONS (1)
  - TRANSPLANT REJECTION [None]
